FAERS Safety Report 6812250-5 (Version None)
Quarter: 2010Q3

REPORT INFORMATION
  Report Type: 
  Country: None (occurrence: None)
  Receive Date: 20100701
  Receipt Date: 20100617
  Transmission Date: 20110219
  Serious: Yes (Other)
  Sender: FDA-Public Use
  Company Number: PHHY2010US34815

PATIENT
  Sex: Male
  Weight: 104.31 kg

DRUGS (1)
  1. ZOMETA [Suspect]
     Indication: METASTASIS
     Dosage: UNK
     Route: 042

REACTIONS (1)
  - OSTEONECROSIS OF JAW [None]
